FAERS Safety Report 9353431 (Version 1)
Quarter: 2013Q2

REPORT INFORMATION
  Report Type: Report from Study
  Country: US (occurrence: US)
  Receive Date: 20130618
  Receipt Date: 20130618
  Transmission Date: 20140414
  Serious: Yes (Hospitalization, Other)
  Sender: FDA-Public Use
  Company Number: US-BAYER-2013-065148

PATIENT
  Age: 53 Year
  Sex: Female
  Weight: 68.93 kg

DRUGS (4)
  1. STIVARGA [Suspect]
     Indication: COLORECTAL CANCER METASTATIC
     Dosage: 4 TABLETS BY MOUTH EVERY DAY
     Route: 048
     Dates: start: 20130421
  2. PERCOCET [Concomitant]
     Dosage: 5-325MG
  3. CYCLOBENZAPRINE [Concomitant]
     Dosage: 10MG
  4. GABAPENTIN [Concomitant]
     Dosage: 100MG

REACTIONS (9)
  - Weight decreased [Unknown]
  - Haemoptysis [Unknown]
  - Haemoptysis [Unknown]
  - Blister [Unknown]
  - Decreased appetite [Unknown]
  - Nausea [Not Recovered/Not Resolved]
  - Vomiting [Recovered/Resolved]
  - Dehydration [Recovered/Resolved]
  - Fatigue [None]
